FAERS Safety Report 12061943 (Version 1)
Quarter: 2016Q1

REPORT INFORMATION
  Report Type: Spontaneous
  Country: US (occurrence: US)
  Receive Date: 20160210
  Receipt Date: 20160210
  Transmission Date: 20160526
  Serious: No
  Sender: FDA-Public Use
  Company Number: US-ALLERGAN-1506819US

PATIENT
  Sex: Female

DRUGS (1)
  1. BOTOX [Suspect]
     Active Substance: ONABOTULINUMTOXINA
     Indication: PRODUCT USED FOR UNKNOWN INDICATION
     Dosage: UNK, SINGLE
     Route: 030

REACTIONS (6)
  - Lip swelling [Not Recovered/Not Resolved]
  - Nodule [Not Recovered/Not Resolved]
  - Cyst [Not Recovered/Not Resolved]
  - Swelling face [Not Recovered/Not Resolved]
  - Lip pain [Not Recovered/Not Resolved]
  - Facial pain [Not Recovered/Not Resolved]
